FAERS Safety Report 9250367 (Version 1)
Quarter: 2013Q1

REPORT INFORMATION
  Report Type: Spontaneous
  Country: US (occurrence: None)
  Receive Date: 20130305
  Receipt Date: 20130305
  Transmission Date: 20140127
  Serious: Yes (Hospitalization)
  Sender: FDA-Public Use
  Company Number: 163-21880-12040527

PATIENT
  Age: 84 Year
  Sex: Female
  Weight: 66.68 kg

DRUGS (26)
  1. REVLIMID [Suspect]
     Indication: PLASMA CELL MYELOMA
     Dosage: 21 IN 28 D
     Route: 048
     Dates: start: 20120330, end: 20120420
  2. MEDROL (METHYLPREDNISOLONE) (TABLETS) [Concomitant]
  3. ESCITALOPRAM (ESCITALOPRAM) [Concomitant]
  4. EXFORGE (AMLODIPINE W/ VALSARTAN) [Concomitant]
  5. IMDUR (ISOSORBIDE MONONITRATE) [Concomitant]
  6. LORAZEPAM [Concomitant]
  7. METOPROLOL SUCC ER (METOPROLOL SUCCINATE) [Concomitant]
  8. ZOLPIDEM (ZOLPIDEM) [Concomitant]
  9. ALLOPURINOL [Concomitant]
  10. ASPIRIN (ACETYLSALICYLIC ACID) [Concomitant]
  11. ONDASETRON [Concomitant]
  12. CRESTOR (ROSUVASTATIN) [Concomitant]
  13. HYDROCODONE/ APAP (VICODIN) [Concomitant]
  14. DEXAMETHASONE [Concomitant]
  15. ISOSORBIDE MONONITRATE [Concomitant]
  16. AMLODIPINE [Concomitant]
  17. OXYCODONE [Concomitant]
  18. ENOXAPARIN [Concomitant]
  19. ACETAMINOPHEN (PARACETAMOL) [Concomitant]
  20. BACTRIM [Concomitant]
  21. DIOVAN (VALSARTAN) [Concomitant]
  22. CEFTRIAXONE [Concomitant]
  23. POTASSIUM CHLORIDE [Concomitant]
  24. PREDNISONE [Concomitant]
  25. AMBIEN (ZOLPIDEM TARTRATE) [Concomitant]
  26. VITAMIN B [Concomitant]

REACTIONS (4)
  - Muscular weakness [None]
  - Urinary tract infection [None]
  - Rash generalised [None]
  - Fatigue [None]
